FAERS Safety Report 23427637 (Version 3)
Quarter: 2024Q4

REPORT INFORMATION
  Report Type: Spontaneous
  Country: US (occurrence: US)
  Receive Date: 20240122
  Receipt Date: 20241220
  Transmission Date: 20250115
  Serious: No
  Sender: SANDOZ
  Company Number: US-SANDOZ-SDZ2024US006494

PATIENT
  Sex: Female

DRUGS (2)
  1. OMNITROPE [Suspect]
     Active Substance: SOMATROPIN
     Indication: Product used for unknown indication
     Dosage: UNK,: 5MG/1.5ML 1.5ML 1LICA
     Route: 065
  2. OMNITROPE [Suspect]
     Active Substance: SOMATROPIN
     Indication: Product used for unknown indication
     Dosage: UNK,: 5MG/1.5ML 1.5ML 1LICA
     Route: 065

REACTIONS (3)
  - Injection site discharge [Unknown]
  - Incorrect dose administered [Unknown]
  - Needle issue [Unknown]
